FAERS Safety Report 7155892-2 (Version None)
Quarter: 2010Q4

REPORT INFORMATION
  Report Type: 
  Country: None (occurrence: None)
  Receive Date: 20101214
  Receipt Date: 20101206
  Transmission Date: 20110411
  Serious: Yes (Hospitalization, Other)
  Sender: FDA-Public Use
  Company Number: FR-BRISTOL-MYERS SQUIBB COMPANY-15429202

PATIENT
  Age: 44 Year
  Sex: Male

DRUGS (2)
  1. REYATAZ [Suspect]
     Indication: HIV INFECTION
     Dosage: DURATION-5 YEARS.
     Route: 048
     Dates: start: 20050201, end: 20100213
  2. TRUVADA [Concomitant]
     Dates: start: 20060601

REACTIONS (4)
  - BLOOD ALKALINE PHOSPHATASE INCREASED [None]
  - CHOLELITHIASIS [None]
  - HEPATIC STEATOSIS [None]
  - TRANSAMINASES INCREASED [None]
